FAERS Safety Report 21747064 (Version 1)
Quarter: 2022Q4

REPORT INFORMATION
  Report Type: Report from Study
  Country: US (occurrence: US)
  Receive Date: 20221219
  Receipt Date: 20221219
  Transmission Date: 20230113
  Serious: No
  Sender: FDA-Public Use
  Company Number: US-ABBVIE-4195778

PATIENT
  Sex: Female

DRUGS (1)
  1. SKYRIZI [Suspect]
     Active Substance: RISANKIZUMAB-RZAA
     Indication: Ankylosing spondylitis
     Dosage: FORM STRENGTH: 150 MG?WEEK FOUR?SKYRIZI DOSE/FREQUENCY 150 MG/ML AT WEEK 0, WEEK 4, AND THEN EVER...
     Route: 058
     Dates: start: 20221017

REACTIONS (2)
  - Off label use [Unknown]
  - Psoriasis [Unknown]
